FAERS Safety Report 7876708-2 (Version None)
Quarter: 2011Q4

REPORT INFORMATION
  Report Type: 
  Country: None (occurrence: None)
  Receive Date: 20111031
  Receipt Date: 20111027
  Transmission Date: 20120403
  Serious: Yes (Life-Threatening)
  Sender: FDA-Public Use
  Company Number: CN-ASTRAZENECA-2011SE63464

PATIENT
  Age: 60 Year

DRUGS (2)
  1. GLUCOSE SOLUTION [Concomitant]
     Dosage: 500 ML
  2. LIDOCAINE [Suspect]
     Indication: VENTRICULAR EXTRASYSTOLES
     Route: 041

REACTIONS (1)
  - ANAPHYLACTIC SHOCK [None]
